FAERS Safety Report 8911778 (Version 1)
Quarter: 2012Q4

REPORT INFORMATION
  Report Type: 
  Country: SE (occurrence: SE)
  Receive Date: 20121115
  Receipt Date: 20121115
  Transmission Date: 20130627
  Serious: Yes (Other)
  Sender: FDA-Public Use
  Company Number: SE-009507513-1211SWE005795

PATIENT
  Sex: Male

DRUGS (1)
  1. FOSAMAX [Suspect]
     Indication: OSTEONECROSIS
     Dosage: 70 mg, qw
     Route: 048

REACTIONS (4)
  - Arthropathy [Unknown]
  - Gastrointestinal disorder [Unknown]
  - Knee arthroplasty [Recovered/Resolved]
  - Off label use [Unknown]
